FAERS Safety Report 14562392 (Version 1)
Quarter: 2018Q1

REPORT INFORMATION
  Report Type: Spontaneous
  Country: US (occurrence: US)
  Receive Date: 20180221
  Receipt Date: 20180221
  Transmission Date: 20180509
  Serious: Yes (Hospitalization)
  Sender: FDA-Public Use
  Company Number: None

PATIENT
  Sex: Female
  Weight: 89.1 kg

DRUGS (6)
  1. LOSARTIN [Concomitant]
     Active Substance: LOSARTAN
  2. HUMALOG [Concomitant]
     Active Substance: INSULIN LISPRO
  3. IRON [Concomitant]
     Active Substance: IRON
  4. LIPITOR [Concomitant]
     Active Substance: ATORVASTATIN CALCIUM
  5. CYMBALTA [Suspect]
     Active Substance: DULOXETINE HYDROCHLORIDE
     Indication: NEUROPATHY PERIPHERAL
     Dosage: ?          QUANTITY:2 CAPSULE(S);?
     Route: 048
     Dates: start: 20080423, end: 20170118
  6. TRESIBA [Concomitant]
     Active Substance: INSULIN DEGLUDEC

REACTIONS (17)
  - Vomiting [None]
  - Paraesthesia [None]
  - Irritability [None]
  - Hypoaesthesia [None]
  - Anorgasmia [None]
  - Nausea [None]
  - Suicidal ideation [None]
  - Cerebrovascular accident [None]
  - Insomnia [None]
  - Cardiac flutter [None]
  - Crying [None]
  - Depression [None]
  - Sensory disturbance [None]
  - Dissociation [None]
  - Loss of libido [None]
  - Fatigue [None]
  - Mood swings [None]

NARRATIVE: CASE EVENT DATE: 20090409
